FAERS Safety Report 10068780 (Version 2)
Quarter: 2014Q2

REPORT INFORMATION
  Report Type: Spontaneous
  Country: US (occurrence: US)
  Receive Date: 20140409
  Receipt Date: 20140409
  Transmission Date: 20141212
  Serious: No
  Sender: FDA-Public Use
  Company Number: US-MYLANLABS-2014S1003824

PATIENT
  Age: 59 Year
  Sex: 0

DRUGS (2)
  1. VALSARTAN AND HYDROCHLOROTHIAZIDE TABLETS [Suspect]
     Indication: BLOOD PRESSURE
     Dosage: X2 DOSES
     Route: 048
     Dates: start: 201302, end: 201302
  2. VITAMINS [Concomitant]

REACTIONS (1)
  - Dyspnoea [Recovered/Resolved]
